FAERS Safety Report 7356485-4 (Version None)
Quarter: 2011Q1

REPORT INFORMATION
  Report Type: 
  Country: None (occurrence: None)
  Receive Date: 20110316
  Receipt Date: 20110301
  Transmission Date: 20110831
  Serious: Yes (Other)
  Sender: FDA-Public Use
  Company Number: PHHY2011CA05709

PATIENT

DRUGS (1)
  1. ZOMETA [Suspect]
     Indication: BREAST CANCER
     Dosage: 4 MG, EVERY 8 WEEKS
     Route: 042

REACTIONS (3)
  - HEART RATE INCREASED [None]
  - BLOOD PRESSURE INCREASED [None]
  - NEOPLASM MALIGNANT [None]
